FAERS Safety Report 9443149 (Version 4)
Quarter: 2013Q3

REPORT INFORMATION
  Report Type: Spontaneous
  Country: US (occurrence: US)
  Receive Date: 20130806
  Receipt Date: 20130822
  Transmission Date: 20140515
  Serious: Yes (Life-Threatening, Hospitalization, Other)
  Sender: FDA-Public Use
  Company Number: US-JNJFOC-20130800689

PATIENT
  Age: 89 Year
  Sex: Male
  Weight: 86 kg

DRUGS (10)
  1. XARELTO [Suspect]
     Indication: CEREBROVASCULAR ACCIDENT PROPHYLAXIS
     Route: 048
     Dates: start: 20120201, end: 20130509
  2. XARELTO [Suspect]
     Indication: ATRIAL FIBRILLATION
     Route: 048
     Dates: start: 20120201, end: 20130509
  3. SYNTHROID [Concomitant]
     Route: 048
  4. LIDODERM [Concomitant]
     Dosage: APPLY FOR 12 HOURS AND REMOVE FOR 12 HOURS.
     Route: 061
  5. LOSARTAN [Concomitant]
     Route: 048
  6. NIACIN [Concomitant]
     Route: 048
  7. INSULIN [Concomitant]
     Route: 065
  8. PROPAFENONE [Concomitant]
     Route: 048
  9. VALACYCLOVIR [Concomitant]
     Route: 048
  10. VITAMIN D [Concomitant]
     Route: 048

REACTIONS (6)
  - Post procedural haemorrhage [Recovered/Resolved]
  - Haemoglobin decreased [Recovering/Resolving]
  - Haemorrhage [Recovered/Resolved]
  - Mouth haemorrhage [Recovered/Resolved]
  - Epistaxis [Recovered/Resolved]
  - Melaena [Recovered/Resolved]
